FAERS Safety Report 4548769-X (Version None)
Quarter: 2005Q1

REPORT INFORMATION
  Report Type: 
  Country: None (occurrence: None)
  Receive Date: 20050107
  Receipt Date: 20050107
  Transmission Date: 20050727
  Serious: Yes (Life-Threatening, Hospitalization, Disabling, Other)
  Sender: FDA-Public Use
  Company Number: None

PATIENT
  Age: 49 Year
  Sex: Female
  Weight: 67.586 kg

DRUGS (1)
  1. CELEBREX [Suspect]

REACTIONS (11)
  - AMNESIA [None]
  - ARRHYTHMIA [None]
  - BLOOD PRESSURE INADEQUATELY CONTROLLED [None]
  - HEART RATE IRREGULAR [None]
  - HYPERACUSIS [None]
  - ISCHAEMIC STROKE [None]
  - MIGRAINE [None]
  - PHOTOPHOBIA [None]
  - POST PROCEDURAL COMPLICATION [None]
  - TACHYCARDIA [None]
  - VERTIGO [None]
